FAERS Safety Report 8817774 (Version 1)
Quarter: 2012Q4

REPORT INFORMATION
  Report Type: 
  Country: JP (occurrence: JP)
  Receive Date: 20121001
  Receipt Date: 20121001
  Transmission Date: 20130627
  Serious: Yes (Hospitalization, Other)
  Sender: FDA-Public Use
  Company Number: PHHY2012JP084963

PATIENT
  Age: 59 Year
  Sex: Male

DRUGS (3)
  1. SIMULECT [Suspect]
     Indication: RENAL TRANSPLANT
     Dosage: 20 mg, UNK
     Route: 042
  2. NEORAL [Suspect]
     Indication: RENAL TRANSPLANT
     Route: 048
  3. MEDROL [Suspect]
     Route: 048
     Dates: start: 2011

REACTIONS (2)
  - Ureteric stenosis [Recovered/Resolved]
  - Diabetes mellitus [Recovered/Resolved]
